FAERS Safety Report 6977232-1 (Version None)
Quarter: 2010Q3

REPORT INFORMATION
  Report Type: 
  Country: None (occurrence: None)
  Receive Date: 20100910
  Receipt Date: 20100902
  Transmission Date: 20110219
  Serious: Yes (Other)
  Sender: FDA-Public Use
  Company Number: US-PFIZER INC-2010111960

PATIENT
  Sex: Female
  Weight: 58.957 kg

DRUGS (7)
  1. LIPITOR [Suspect]
     Indication: BLOOD CHOLESTEROL INCREASED
     Dosage: 20 MG, UNK
     Route: 048
  2. LIPITOR [Suspect]
     Indication: BLOOD TRIGLYCERIDES INCREASED
     Dosage: UNK
  3. WELCHOL [Suspect]
     Indication: BLOOD CHOLESTEROL INCREASED
     Dosage: UNK
  4. WELCHOL [Suspect]
     Indication: BLOOD TRIGLYCERIDES INCREASED
  5. MOBIC [Concomitant]
     Indication: ARTHRITIS
     Dosage: UNK
  6. OMEPRAZOLE [Concomitant]
     Indication: DYSPEPSIA
     Dosage: UNK
  7. OMEPRAZOLE [Concomitant]
     Indication: REFLUX OESOPHAGITIS

REACTIONS (13)
  - ACCIDENT [None]
  - ARTHRALGIA [None]
  - BACK PAIN [None]
  - BLOOD CHOLESTEROL ABNORMAL [None]
  - BLOOD TRIGLYCERIDES INCREASED [None]
  - DYSPEPSIA [None]
  - EYE PAIN [None]
  - HEADACHE [None]
  - INFLUENZA [None]
  - MYALGIA [None]
  - PAIN [None]
  - UNEVALUABLE EVENT [None]
  - WEIGHT DECREASED [None]
